FAERS Safety Report 7476763-8 (Version None)
Quarter: 2011Q2

REPORT INFORMATION
  Report Type: 
  Country: None (occurrence: None)
  Receive Date: 20110512
  Receipt Date: 20110504
  Transmission Date: 20111010
  Serious: Yes (Other)
  Sender: FDA-Public Use
  Company Number: US-GILEAD-2011-0035848

PATIENT
  Sex: Male

DRUGS (2)
  1. LETAIRIS [Suspect]
     Indication: PULMONARY HYPERTENSION
     Route: 048
     Dates: start: 20090514, end: 20110121
  2. LETAIRIS [Suspect]
     Indication: SCLERODERMA

REACTIONS (3)
  - OESOPHAGEAL CARCINOMA [None]
  - ABDOMINAL PAIN UPPER [None]
  - NAUSEA [None]
